FAERS Safety Report 9260186 (Version 1)
Quarter: 2013Q2

REPORT INFORMATION
  Report Type: Spontaneous
  Country: US (occurrence: US)
  Receive Date: 20130429
  Receipt Date: 20130429
  Transmission Date: 20140414
  Serious: No
  Sender: FDA-Public Use
  Company Number: US-PFIZER INC-2013133404

PATIENT
  Sex: Female

DRUGS (1)
  1. LYRICA [Suspect]
     Dosage: 200 MG, UNK

REACTIONS (4)
  - Anxiety [Unknown]
  - Confusional state [Unknown]
  - Contusion [Unknown]
  - Oral pain [Unknown]
